FAERS Safety Report 25120455 (Version 2)
Quarter: 2025Q2

REPORT INFORMATION
  Report Type: Report from Study
  Country: US (occurrence: US)
  Receive Date: 20250325
  Receipt Date: 20250404
  Transmission Date: 20250717
  Serious: Yes (Other)
  Sender: NOVARTIS
  Company Number: US-002147023-NVSC2025US047957

PATIENT
  Age: 26 Year
  Sex: Female
  Weight: 72.7 kg

DRUGS (2)
  1. PIQRAY [Suspect]
     Active Substance: ALPELISIB
     Indication: PIK3CA-activated mutation
     Route: 048
     Dates: start: 20240902
  2. PIQRAY [Suspect]
     Active Substance: ALPELISIB
     Dosage: 125 MG, QD
     Route: 065

REACTIONS (6)
  - Diabetes mellitus [Not Recovered/Not Resolved]
  - Polydipsia [Unknown]
  - Polyuria [Unknown]
  - Chest pain [Unknown]
  - Dyspnoea [Unknown]
  - Gamma-glutamyltransferase increased [Unknown]

NARRATIVE: CASE EVENT DATE: 20241107
